FAERS Safety Report 16288957 (Version 1)
Quarter: 2019Q2

REPORT INFORMATION
  Report Type: Spontaneous
  Country: US (occurrence: US)
  Receive Date: 20190509
  Receipt Date: 20190509
  Transmission Date: 20190711
  Serious: No
  Sender: FDA-Public Use
  Company Number: US-HORIZON-ACT-0073-2019

PATIENT
  Age: 63 Year
  Sex: Male

DRUGS (1)
  1. ACTIMMUNE [Suspect]
     Active Substance: INTERFERON GAMMA-1B
     Indication: CUTANEOUS T-CELL LYMPHOMA
     Dosage: 3 TIMES PER WEEK
     Route: 058
     Dates: start: 20190128

REACTIONS (3)
  - Fall [Unknown]
  - Off label use [Unknown]
  - Muscle rupture [Unknown]
